FAERS Safety Report 8901198 (Version 5)
Quarter: 2014Q1

REPORT INFORMATION
  Report Type: Spontaneous
  Country: US (occurrence: US)
  Receive Date: 20121109
  Receipt Date: 20140115
  Transmission Date: 20141002
  Serious: Yes (Other)
  Sender: FDA-Public Use
  Company Number: US-PFIZER INC-2012279688

PATIENT
  Sex: Female
  Weight: 70.3 kg

DRUGS (3)
  1. LIPITOR [Suspect]
     Dosage: UNK
  2. NORVASC [Suspect]
     Dosage: UNK
  3. NEURONTIN [Suspect]
     Dosage: UNK

REACTIONS (5)
  - Weight decreased [Unknown]
  - Eating disorder [Unknown]
  - Grief reaction [Unknown]
  - Arthritis [Unknown]
  - Pain in extremity [Unknown]
